FAERS Safety Report 9662443 (Version 2)
Quarter: 2013Q4

REPORT INFORMATION
  Report Type: Spontaneous
  Country: US (occurrence: US)
  Receive Date: 20131031
  Receipt Date: 20131031
  Transmission Date: 20140711
  Serious: Yes (Other)
  Sender: FDA-Public Use
  Company Number: US-NAPPMUNDI-USA-2011-0063318

PATIENT
  Age: 54 Year
  Sex: Male

DRUGS (3)
  1. OXYCONTIN (NDA 22-272) [Suspect]
     Indication: PAIN
     Dosage: UNK UNK, SEE TEXT
     Route: 048
     Dates: start: 20110127
  2. OXYCONTIN (NDA 22-272) [Suspect]
     Indication: BACK PAIN
  3. PERCOCET                           /00446701/ [Concomitant]
     Indication: BACK PAIN
     Dosage: UNK, PRN
     Route: 048

REACTIONS (5)
  - Dyspnoea [Not Recovered/Not Resolved]
  - Nausea [Not Recovered/Not Resolved]
  - Abdominal pain upper [Not Recovered/Not Resolved]
  - Inadequate analgesia [Not Recovered/Not Resolved]
  - Intentional drug misuse [Unknown]
